FAERS Safety Report 15188227 (Version 1)
Quarter: 2018Q3

REPORT INFORMATION
  Report Type: Report from Study
  Country: ES (occurrence: ES)
  Receive Date: 20180724
  Receipt Date: 20180724
  Transmission Date: 20181010
  Serious: Yes (Hospitalization)
  Sender: FDA-Public Use
  Company Number: ES-TEVA-2018-ES-927987

PATIENT
  Age: 76 Year
  Sex: Female
  Weight: 31 kg

DRUGS (6)
  1. VINCRISTINA [Suspect]
     Active Substance: VINCRISTINE
     Dosage: 1.5 MILLIGRAM
     Route: 042
     Dates: start: 20170315, end: 20170315
  2. METILPREDNISOLONA [Concomitant]
     Active Substance: METHYLPREDNISOLONE
     Dosage: 20 MILLIGRAM
     Route: 042
     Dates: start: 20170310
  3. RANITIDINE. [Concomitant]
     Active Substance: RANITIDINE
     Indication: PROPHYLAXIS AGAINST GASTROINTESTINAL ULCER
     Dosage: 35 MILLIGRAM
     Route: 042
     Dates: start: 20170310
  4. PARACETAMOL [Concomitant]
     Active Substance: ACETAMINOPHEN
     Indication: PAIN
     Dosage: 350 MILLIGRAM
     Route: 042
     Dates: start: 20170310
  5. DAUNOBLASTINA [Suspect]
     Active Substance: DAUNORUBICIN
     Indication: ACUTE LYMPHOCYTIC LEUKAEMIA
     Dosage: 31 MILLIGRAM
     Route: 042
     Dates: start: 20170315, end: 20170315
  6. NOLOTIL [Concomitant]
     Indication: PAIN
     Dosage: 3 ML
     Route: 042
     Dates: start: 20170310

REACTIONS (1)
  - Hepatitis acute [Recovered/Resolved]

NARRATIVE: CASE EVENT DATE: 20170317
